FAERS Safety Report 25248645 (Version 1)
Quarter: 2025Q2

REPORT INFORMATION
  Report Type: Spontaneous
  Country: US (occurrence: US)
  Receive Date: 20250429
  Receipt Date: 20250429
  Transmission Date: 20250716
  Serious: No
  Sender: ALEXION PHARMACEUTICALS
  Company Number: US-AstraZeneca-CH-00856897A

PATIENT

DRUGS (2)
  1. VOYDEYA [Suspect]
     Active Substance: DANICOPAN
     Indication: Extravascular haemolysis
     Route: 065
  2. IPTACOPAN [Concomitant]
     Active Substance: IPTACOPAN
     Route: 065

REACTIONS (2)
  - Off label use [Unknown]
  - Cough [Unknown]
